FAERS Safety Report 24738338 (Version 1)
Quarter: 2024Q4

REPORT INFORMATION
  Report Type: Report from Study
  Country: JP (occurrence: JP)
  Receive Date: 20241216
  Receipt Date: 20241216
  Transmission Date: 20250115
  Serious: Yes (Death)
  Sender: PFIZER
  Company Number: JP-PFIZER INC-PV202400162820

PATIENT

DRUGS (2)
  1. IDARUBICIN HYDROCHLORIDE [Suspect]
     Active Substance: IDARUBICIN HYDROCHLORIDE
     Indication: Acute myeloid leukaemia
     Dosage: 12 MG/M2, ON DAYS 1, 3, 5, 8,
  2. ENOCITABINE [Suspect]
     Active Substance: ENOCITABINE
     Indication: Acute myeloid leukaemia
     Dosage: 350 MG/M2, ON DAYS 1-10

REACTIONS (1)
  - Death [Fatal]
